FAERS Safety Report 14599239 (Version 1)
Quarter: 2018Q1

REPORT INFORMATION
  Report Type: Spontaneous
  Country: DE (occurrence: DE)
  Receive Date: 20180305
  Receipt Date: 20180305
  Transmission Date: 20180509
  Serious: Yes (Hospitalization)
  Sender: FDA-Public Use
  Company Number: DE-SA-2018SA057942

PATIENT
  Age: 83 Year
  Sex: Male

DRUGS (3)
  1. INSULIN HUMAN [Suspect]
     Active Substance: INSULIN HUMAN
     Route: 065
  2. LANTUS [Suspect]
     Active Substance: INSULIN GLARGINE
     Route: 051
  3. INSULIN HUMAN [Concomitant]
     Active Substance: INSULIN HUMAN
     Route: 065

REACTIONS (4)
  - Cerebrovascular accident [Recovered/Resolved]
  - Speech disorder [Recovered/Resolved]
  - Staring [Unknown]
  - Arrhythmia [Recovered/Resolved]

NARRATIVE: CASE EVENT DATE: 201712
